FAERS Safety Report 8096663-2 (Version None)
Quarter: 2012Q1

REPORT INFORMATION
  Report Type: 
  Country: None (occurrence: None)
  Receive Date: 20120129
  Receipt Date: 20111201
  Transmission Date: 20120608
  Serious: Yes (Other)
  Sender: FDA-Public Use
  Company Number: US-ABBOTT-11P-163-0880192-00

PATIENT
  Sex: Female
  Weight: 83.99 kg

DRUGS (1)
  1. HUMIRA [Suspect]
     Indication: PSORIASIS
     Dates: start: 20110601, end: 20111001

REACTIONS (4)
  - PSORIASIS [None]
  - TENDON OPERATION [None]
  - ROTATOR CUFF REPAIR [None]
  - DRUG DOSE OMISSION [None]
